FAERS Safety Report 9885633 (Version 1)
Quarter: 2014Q1

REPORT INFORMATION
  Report Type: Spontaneous
  Country: SG (occurrence: None)
  Receive Date: 20140206
  Receipt Date: 20140206
  Transmission Date: 20141002
  Serious: Yes (Hospitalization)
  Sender: FDA-Public Use
  Company Number: 2014HINLIT0059

PATIENT
  Sex: Male

DRUGS (11)
  1. LITHIUM (LITHIUM) UNKNOWN [Suspect]
     Indication: BIPOLAR DISORDER
     Dates: start: 1994, end: 2003
  2. METHOTREXATE [Suspect]
     Indication: PSORIASIS
     Dosage: ONCE A WEEK
     Dates: start: 201108
  3. BETAMETHASONE [Concomitant]
  4. COAL TAR 15% SHAMPOO [Concomitant]
  5. HYDROCORTISONE !% CREAM [Concomitant]
  6. CLIOQUINOL 3% CREAM [Concomitant]
  7. QUETIAPINE + OLANZAPINE +CARBAMAZEPINE [Concomitant]
  8. QUETIAPINE [Concomitant]
  9. CARBAMAZEPINE [Concomitant]
  10. OLANZAPINE [Concomitant]
  11. FOLIC ACID [Suspect]
     Indication: PSORIASIS
     Dates: start: 201108

REACTIONS (3)
  - Psoriasis [None]
  - Hypothyroidism [None]
  - Mania [None]
